FAERS Safety Report 7318896-2 (Version None)
Quarter: 2011Q1

REPORT INFORMATION
  Report Type: 
  Country: None (occurrence: None)
  Receive Date: 20110228
  Receipt Date: 20110216
  Transmission Date: 20110831
  Serious: Yes (Hospitalization)
  Sender: FDA-Public Use
  Company Number: US-NOVOPROD-316530

PATIENT
  Sex: Female

DRUGS (2)
  1. VICTOZA [Suspect]
     Dosage: 1.2 MG, QD
     Route: 058
  2. VICTOZA [Suspect]
     Indication: TYPE 2 DIABETES MELLITUS
     Dosage: 0.6 MG, QD
     Route: 058
     Dates: start: 20100101, end: 20100101

REACTIONS (3)
  - VOMITING [None]
  - DEHYDRATION [None]
  - RENAL FAILURE [None]
